FAERS Safety Report 21642648 (Version 1)
Quarter: 2022Q4

REPORT INFORMATION
  Report Type: Spontaneous
  Country: FR (occurrence: None)
  Receive Date: 20221125
  Receipt Date: 20221125
  Transmission Date: 20230112
  Serious: Yes (Congenital Anomaly)
  Sender: FDA-Public Use
  Company Number: 2022A382081

PATIENT
  Age: 0 Year
  Sex: Female
  Weight: 5 kg

DRUGS (2)
  1. OMEPRAZOLE [Suspect]
     Active Substance: OMEPRAZOLE
     Indication: Product used for unknown indication
     Route: 065
  2. COMIRNATY [Suspect]
     Active Substance: TOZINAMERAN
     Indication: COVID-19 immunisation
     Dosage: R11.0DF ONCE/SINGLE ADMINISTRATION
     Route: 030
     Dates: start: 20220117, end: 20220117

REACTIONS (3)
  - Foetal exposure during pregnancy [Recovered/Resolved with Sequelae]
  - Congenital anomaly [Not Recovered/Not Resolved]
  - Deafness [Not Recovered/Not Resolved]

NARRATIVE: CASE EVENT DATE: 20220701
